FAERS Safety Report 20688799 (Version 1)
Quarter: 2022Q2

REPORT INFORMATION
  Report Type: Spontaneous
  Country: NL (occurrence: NL)
  Receive Date: 20220408
  Receipt Date: 20220408
  Transmission Date: 20220721
  Serious: Yes (Hospitalization, Other)
  Sender: FDA-Public Use
  Company Number: NL-LRB-00331938

PATIENT
  Sex: Female
  Weight: 84 kg

DRUGS (1)
  1. NITROFURANTOIN [Suspect]
     Active Substance: NITROFURANTOIN
     Indication: Cystitis
     Dosage: 1 DOSAGE FORM, ONCE A DAY(1X PER DAG)
     Route: 048
     Dates: start: 2017, end: 2017

REACTIONS (1)
  - Anaphylactic shock [Recovered/Resolved]
